FAERS Safety Report 7841605 (Version 4)
Quarter: 2012Q4

REPORT INFORMATION
  Report Type: Report from Study
  Country: FR (occurrence: FR)
  Receive Date: 20110304
  Receipt Date: 20121204
  Transmission Date: 20130627
  Serious: Yes (Hospitalization)
  Sender: FDA-Public Use
  Company Number: FR-ROCHE-762312

PATIENT
  Age: 72 Year
  Sex: Female
  Weight: 52 kg

DRUGS (12)
  1. LEFLUNOMIDE [Suspect]
     Indication: RHEUMATOID ARTHRITIS
     Route: 065
     Dates: start: 20100902
  2. TOCILIZUMAB [Suspect]
     Indication: RHEUMATOID ARTHRITIS
     Route: 042
     Dates: start: 20100902
  3. BISOPROLOL [Concomitant]
     Indication: HYPERTENSION
     Dosage: DOSE:1/2-0-1/2, FREQUENCY:DAILY, START DATE LONG TIME
     Route: 048
  4. LEVOTHYROX [Concomitant]
     Indication: HYPERTHYROIDISM
     Dosage: DOSE:1 AND 1/2 DOSE FORM, FREQUENCY:DAILY, DRUG LEVOTHYROX 50
     Route: 048
  5. SIMVASTATINE [Concomitant]
     Indication: HYPERCHOLESTEROLAEMIA
     Dosage: DRUG SIMVASTATINE 20, FREQUENCY:DAILY, START DATE:LONG TIME
     Route: 048
  6. CORTANCYL [Concomitant]
     Indication: RHEUMATOID ARTHRITIS
     Dosage: DRUG CORTANCYL 5, FREQUENCY:DAILY, START DATE LONG TIME
     Route: 048
  7. ARAVA [Concomitant]
     Indication: RHEUMATOID ARTHRITIS
     Dosage: DRUG: ARAVA 20, START DATE:LONG TIME
     Route: 048
  8. DOLIPRANE [Concomitant]
     Dosage: DRUG:DOLIPRANE 500, FREQUENCY:DAILY
     Route: 065
  9. INEXIUM [Concomitant]
     Dosage: DRUG REPORTED AS INEXIUM 20, FREQUENCY:DAILY
     Route: 065
  10. PLAVIX [Concomitant]
     Route: 065
  11. STAGID [Concomitant]
     Route: 065
  12. IDEOS [Concomitant]
     Dosage: 2 DF
     Route: 065

REACTIONS (4)
  - Malaise [Recovered/Resolved]
  - Altered state of consciousness [Recovered/Resolved]
  - Tremor [Recovered/Resolved]
  - Abnormal behaviour [Recovered/Resolved]
